FAERS Safety Report 7763480-X (Version None)
Quarter: 2011Q3

REPORT INFORMATION
  Report Type: 
  Country: None (occurrence: None)
  Receive Date: 20110920
  Receipt Date: 20110824
  Transmission Date: 20111222
  Serious: Yes (Death, Hospitalization, Other)
  Sender: FDA-Public Use
  Company Number: US-BAXTER-2009BH003705

PATIENT
  Age: 77 Year
  Sex: Male
  Weight: 83 kg

DRUGS (74)
  1. HEPARIN SODIUM 1,000 UNITS AND SODIUM CHLORIDE 0.9% [Suspect]
     Indication: DIALYSIS
     Route: 042
     Dates: start: 20071001
  2. NOVOLIN 70/30 [Concomitant]
     Indication: PRODUCT USED FOR UNKNOWN INDICATION
     Route: 065
  3. REGLAN [Concomitant]
     Indication: PRODUCT USED FOR UNKNOWN INDICATION
     Route: 065
  4. COREG [Concomitant]
     Indication: PRODUCT USED FOR UNKNOWN INDICATION
     Route: 048
  5. TYLENOL W/ CODEINE NO. 3 [Concomitant]
     Indication: PRODUCT USED FOR UNKNOWN INDICATION
     Route: 065
  6. INSULIN DETEMIR [Concomitant]
     Indication: PRODUCT USED FOR UNKNOWN INDICATION
     Route: 058
     Dates: start: 19800101
  7. HEPARIN SODIUM INJECTION [Suspect]
     Indication: HAEMODIALYSIS
     Route: 010
     Dates: start: 20070906
  8. HEPARIN SODIUM INJECTION [Suspect]
     Route: 065
     Dates: start: 20080301
  9. ACETYLSALICYLIC ACID SRT [Concomitant]
     Indication: PRODUCT USED FOR UNKNOWN INDICATION
     Route: 048
  10. BICITRA [Concomitant]
     Indication: PRODUCT USED FOR UNKNOWN INDICATION
     Route: 065
  11. METOLAZONE [Concomitant]
     Indication: PRODUCT USED FOR UNKNOWN INDICATION
     Route: 065
     Dates: start: 19950101
  12. TAMSULOSIN HCL [Concomitant]
     Indication: PRODUCT USED FOR UNKNOWN INDICATION
     Route: 065
     Dates: start: 20040101
  13. ALBUTEROL [Concomitant]
     Route: 055
  14. HEPARIN SODIUM INJECTION [Suspect]
     Indication: THROMBOSIS PROPHYLAXIS
     Route: 010
     Dates: start: 20070906
  15. INSULIN [Concomitant]
     Indication: PRODUCT USED FOR UNKNOWN INDICATION
     Route: 058
  16. LASIX [Concomitant]
     Indication: PRODUCT USED FOR UNKNOWN INDICATION
     Route: 065
     Dates: start: 19950101
  17. METOPROLOL TARTRATE [Concomitant]
     Indication: PRODUCT USED FOR UNKNOWN INDICATION
     Route: 065
     Dates: start: 20030101
  18. ATORVASTATIN CALCIUM [Concomitant]
     Indication: PRODUCT USED FOR UNKNOWN INDICATION
     Route: 065
  19. FLAGYL [Concomitant]
     Indication: PRODUCT USED FOR UNKNOWN INDICATION
     Route: 065
  20. WARFARIN SODIUM [Concomitant]
     Route: 065
     Dates: start: 20010101
  21. AMLODIPINE BESYLATE AND VALSARTAN [Concomitant]
     Indication: PRODUCT USED FOR UNKNOWN INDICATION
     Route: 065
     Dates: start: 20070523
  22. ALBUTEROL [Concomitant]
     Indication: PRODUCT USED FOR UNKNOWN INDICATION
     Route: 055
  23. VYTORIN [Concomitant]
     Indication: PRODUCT USED FOR UNKNOWN INDICATION
     Route: 065
     Dates: start: 20070823
  24. HEPARIN SODIUM INJECTION [Suspect]
     Route: 058
     Dates: start: 20070906, end: 20070923
  25. HEPARIN SODIUM INJECTION [Suspect]
     Route: 058
     Dates: start: 20071025, end: 20071026
  26. HEPARIN SODIUM INJECTION [Suspect]
     Route: 065
     Dates: start: 20071001
  27. HEPARIN SODIUM INJECTION [Suspect]
     Route: 065
     Dates: start: 20071031
  28. HEPARIN SODIUM INJECTION [Suspect]
     Route: 065
     Dates: start: 20071031
  29. HEPARIN SODIUM INJECTION [Suspect]
     Route: 065
     Dates: start: 20071110, end: 20071117
  30. HEPARIN SODIUM INJECTION [Suspect]
     Route: 065
     Dates: start: 20080211, end: 20080213
  31. HEPARIN SODIUM INJECTION [Suspect]
     Route: 065
     Dates: start: 20080301
  32. HEPARIN SODIUM 5,000 UNITS IN DEXTROSE 5% [Suspect]
     Indication: IMPLANTABLE DEFIBRILLATOR INSERTION
     Route: 041
     Dates: start: 20070901, end: 20071001
  33. DIGOXIN [Concomitant]
     Indication: PRODUCT USED FOR UNKNOWN INDICATION
     Route: 048
  34. DARVOCET-N 50 [Concomitant]
     Indication: PAIN
     Route: 065
     Dates: start: 20071022
  35. HEPARIN SODIUM INJECTION [Suspect]
     Indication: COAGULOPATHY
     Route: 010
     Dates: start: 20070906
  36. HEPARIN SODIUM INJECTION [Suspect]
     Route: 058
     Dates: start: 20071025, end: 20071026
  37. HEPARIN SODIUM INJECTION [Suspect]
     Route: 065
     Dates: start: 20071001
  38. HEPARIN SODIUM INJECTION [Suspect]
     Route: 065
     Dates: start: 20071110, end: 20071117
  39. HEPARIN SODIUM INJECTION [Suspect]
     Route: 065
     Dates: start: 20071110, end: 20071117
  40. HEPARIN SODIUM INJECTION [Suspect]
     Route: 065
     Dates: start: 20080211, end: 20080213
  41. WARFARIN SODIUM [Concomitant]
     Indication: PRODUCT USED FOR UNKNOWN INDICATION
     Route: 065
     Dates: start: 20010101
  42. PANTOPRAZOLE [Concomitant]
     Indication: PRODUCT USED FOR UNKNOWN INDICATION
     Route: 048
  43. IRON SULFATETHIAMIN COMPOUND TAB [Concomitant]
     Indication: PRODUCT USED FOR UNKNOWN INDICATION
     Route: 065
     Dates: start: 20070813
  44. ZETIA [Concomitant]
     Indication: PRODUCT USED FOR UNKNOWN INDICATION
     Route: 065
  45. ACTOS [Concomitant]
     Indication: PRODUCT USED FOR UNKNOWN INDICATION
     Route: 065
     Dates: start: 20070614
  46. HEPARIN SODIUM INJECTION [Suspect]
     Route: 058
     Dates: start: 20070906, end: 20070923
  47. HEPARIN SODIUM INJECTION [Suspect]
     Route: 058
     Dates: start: 20071026
  48. HEPARIN SODIUM INJECTION [Suspect]
     Route: 065
     Dates: start: 20071027
  49. HEPARIN SODIUM INJECTION [Suspect]
     Route: 065
     Dates: start: 20080301
  50. HEPARIN SODIUM 5,000 UNITS IN DEXTROSE 5% [Suspect]
     Route: 065
  51. EZETIMIBE [Concomitant]
     Indication: PRODUCT USED FOR UNKNOWN INDICATION
     Route: 048
  52. LANTUS [Concomitant]
     Indication: PRODUCT USED FOR UNKNOWN INDICATION
     Route: 048
  53. ALDACTONE [Concomitant]
     Indication: PRODUCT USED FOR UNKNOWN INDICATION
     Route: 065
     Dates: start: 20040101
  54. POTASSIUM CHLORIDE [Concomitant]
     Indication: PRODUCT USED FOR UNKNOWN INDICATION
     Route: 065
     Dates: start: 20010101
  55. HEPARIN SODIUM INJECTION [Suspect]
     Route: 058
     Dates: start: 20071025, end: 20071026
  56. HEPARIN SODIUM INJECTION [Suspect]
     Route: 058
     Dates: start: 20071026
  57. HEPARIN SODIUM INJECTION [Suspect]
     Route: 065
     Dates: start: 20080211, end: 20080213
  58. HEPARIN SODIUM 1,000 UNITS AND SODIUM CHLORIDE 0.9% [Suspect]
     Route: 042
     Dates: start: 20071110, end: 20071117
  59. AMIODARONE HCL [Concomitant]
     Indication: PRODUCT USED FOR UNKNOWN INDICATION
     Route: 048
  60. DOCUSATE SODIUM [Concomitant]
     Indication: PRODUCT USED FOR UNKNOWN INDICATION
     Route: 048
  61. NYSTATIN [Concomitant]
     Indication: PRODUCT USED FOR UNKNOWN INDICATION
     Route: 065
  62. GLIMEPIRIDE [Concomitant]
     Indication: PRODUCT USED FOR UNKNOWN INDICATION
     Route: 048
  63. SIMVASTATIN [Concomitant]
     Indication: PRODUCT USED FOR UNKNOWN INDICATION
     Route: 048
  64. HEPARIN SODIUM INJECTION [Suspect]
     Route: 058
     Dates: start: 20070906, end: 20070923
  65. HEPARIN SODIUM INJECTION [Suspect]
     Route: 065
     Dates: start: 20071001
  66. HEPARIN SODIUM INJECTION [Suspect]
     Route: 065
     Dates: start: 20071031
  67. HEPARIN SODIUM INJECTION [Suspect]
     Route: 058
     Dates: start: 20071026
  68. HEPARIN SODIUM INJECTION [Suspect]
     Route: 065
     Dates: start: 20071027
  69. HEPARIN SODIUM INJECTION [Suspect]
     Route: 065
     Dates: start: 20071027
  70. HEPARIN SODIUM 1,000 UNITS AND SODIUM CHLORIDE 0.9% [Suspect]
     Route: 042
     Dates: start: 20071027
  71. LEXAPRO [Concomitant]
     Indication: PRODUCT USED FOR UNKNOWN INDICATION
     Route: 048
  72. ARANESP [Concomitant]
     Indication: ANAEMIA
     Route: 048
  73. VALSARTAN [Concomitant]
     Indication: PRODUCT USED FOR UNKNOWN INDICATION
     Route: 065
     Dates: start: 20070506
  74. ALLOPURINOL [Concomitant]
     Indication: PRODUCT USED FOR UNKNOWN INDICATION
     Route: 048
     Dates: start: 20010101

REACTIONS (19)
  - CARDIAC FAILURE CONGESTIVE [None]
  - PYREXIA [None]
  - CARDIAC FAILURE [None]
  - RESPIRATORY FAILURE [None]
  - SERRATIA BACTERAEMIA [None]
  - AZOTAEMIA [None]
  - CARDIOGENIC SHOCK [None]
  - HAEMATOMA INFECTION [None]
  - HYPOTENSION [None]
  - MUSCULAR WEAKNESS [None]
  - ACUTE MYOCARDIAL INFARCTION [None]
  - RETROPERITONEAL HAEMATOMA [None]
  - RENAL FAILURE [None]
  - ATRIAL FIBRILLATION [None]
  - THROMBOCYTOPENIA [None]
  - HEART DISEASE CONGENITAL [None]
  - VENTRICULAR TACHYCARDIA [None]
  - HYPOGLYCAEMIA [None]
  - VIITH NERVE PARALYSIS [None]
